FAERS Safety Report 8430634-9 (Version None)
Quarter: 2012Q2

REPORT INFORMATION
  Report Type: 
  Country: None (occurrence: None)
  Receive Date: 20120612
  Receipt Date: 20120608
  Transmission Date: 20120825
  Serious: Yes (Other)
  Sender: FDA-Public Use
  Company Number: US-PFIZER INC-2012098711

PATIENT
  Sex: Female
  Weight: 107.48 kg

DRUGS (4)
  1. PRISTIQ [Suspect]
     Dosage: 50 MG, 1X/DAY
     Route: 048
     Dates: start: 20120301
  2. PRISTIQ [Suspect]
     Indication: STRESS
     Dosage: 50 MG, 1X/DAY
     Route: 048
     Dates: start: 20120201, end: 20120301
  3. PRISTIQ [Suspect]
     Dosage: UNK
     Route: 048
     Dates: start: 20120301, end: 20120301
  4. PRISTIQ [Suspect]
     Indication: DEPRESSION
     Dosage: 100 MG, 1X/DAY
     Route: 048
     Dates: start: 20120301, end: 20120301

REACTIONS (26)
  - LIMB DISCOMFORT [None]
  - FALL [None]
  - NAUSEA [None]
  - HYPERSOMNIA [None]
  - TREMOR [None]
  - VISION BLURRED [None]
  - DIZZINESS [None]
  - GAIT DISTURBANCE [None]
  - FATIGUE [None]
  - MOOD SWINGS [None]
  - MALAISE [None]
  - IRRITABILITY [None]
  - INSOMNIA [None]
  - HYPOTENSION [None]
  - DRUG INEFFECTIVE [None]
  - NECK PAIN [None]
  - WEIGHT INCREASED [None]
  - RESTLESS LEGS SYNDROME [None]
  - MUSCULOSKELETAL PAIN [None]
  - ANGER [None]
  - DYSSTASIA [None]
  - VISUAL IMPAIRMENT [None]
  - TACHYPHRENIA [None]
  - FEELING HOT [None]
  - DIPLOPIA [None]
  - BACK PAIN [None]
